FAERS Safety Report 6271714-6 (Version None)
Quarter: 2009Q3

REPORT INFORMATION
  Report Type: 
  Country: None (occurrence: None)
  Receive Date: 20090716
  Receipt Date: 20090716
  Transmission Date: 20100115
  Serious: Yes (Other)
  Sender: FDA-Public Use
  Company Number: None

PATIENT
  Sex: Female

DRUGS (2)
  1. NORTREL 1/35-21 [Suspect]
     Dates: start: 20081001
  2. HALOPERIDOL [Suspect]

REACTIONS (1)
  - LIVER TRANSPLANT REJECTION [None]
